FAERS Safety Report 18406623 (Version 2)
Quarter: 2020Q4

REPORT INFORMATION
  Report Type: Spontaneous
  Country: US (occurrence: US)
  Receive Date: 20201020
  Receipt Date: 20201105
  Transmission Date: 20210114
  Serious: Yes (Hospitalization)
  Sender: FDA-Public Use
  Company Number: US-SAOL THERAPEUTICS-2020SAO00447

PATIENT
  Age: 43 Year
  Sex: Male

DRUGS (3)
  1. LIORESAL [Suspect]
     Active Substance: BACLOFEN
     Dosage: 96 ?G, \DAY
     Route: 037
     Dates: start: 2020, end: 20201018
  2. LIORESAL [Suspect]
     Active Substance: BACLOFEN
     Indication: MUSCLE SPASTICITY
     Dosage: 310 ?G, \DAY
     Route: 037
     Dates: end: 2020
  3. LIORESAL [Suspect]
     Active Substance: BACLOFEN
     Indication: MUSCLE SPASMS
     Dosage: UNK; PRIOR TO 18-OCT-2020, DAILY DOSE WAS LOWERED
     Route: 037
     Dates: start: 2020, end: 2020

REACTIONS (9)
  - Clonus [Unknown]
  - Meningitis streptococcal [Unknown]
  - Complication associated with device [Recovered/Resolved]
  - Muscle spasms [Unknown]
  - Pruritus [Unknown]
  - Formication [Unknown]
  - Fall [Unknown]
  - Device failure [Not Recovered/Not Resolved]
  - Muscle spasticity [Unknown]

NARRATIVE: CASE EVENT DATE: 2020
